FAERS Safety Report 8239036-1 (Version None)
Quarter: 2012Q1

REPORT INFORMATION
  Report Type: 
  Country: None (occurrence: None)
  Receive Date: 20120327
  Receipt Date: 20120319
  Transmission Date: 20120608
  Serious: Yes (Other)
  Sender: FDA-Public Use
  Company Number: US-ASTRAZENECA-2012SE11909

PATIENT
  Age: 56 Year
  Sex: Female

DRUGS (12)
  1. COMBIVENT [Concomitant]
  2. ABHR CREAM [Concomitant]
  3. SENNA S [Concomitant]
     Dosage: TWICE DAILY
  4. CLONAZEPAM [Concomitant]
  5. CUS STOOL SOFTENER [Concomitant]
     Dosage: TWICE DAILY
  6. OXYGEN [Concomitant]
  7. FAMOTIDINE [Concomitant]
     Dosage: ONE DAILY
  8. CARISOPRODOL [Concomitant]
  9. SYMBICORT [Suspect]
     Dosage: UNKNOWN
     Route: 055
  10. HYDROCODONE [Concomitant]
  11. PROCHLORPERAZINE [Concomitant]
  12. METHADONE HCL [Concomitant]

REACTIONS (5)
  - SMALL CELL LUNG CANCER EXTENSIVE STAGE [None]
  - EMPHYSEMA [None]
  - MALAISE [None]
  - ANXIETY [None]
  - CHRONIC OBSTRUCTIVE PULMONARY DISEASE [None]
